FAERS Safety Report 11341950 (Version 3)
Quarter: 2016Q2

REPORT INFORMATION
  Report Type: Spontaneous
  Country: None (occurrence: DO)
  Receive Date: 20150805
  Receipt Date: 20160414
  Transmission Date: 20160815
  Serious: Yes (Other)
  Sender: FDA-Public Use
  Company Number: DO-MERCK KGAA-1040936

PATIENT

DRUGS (1)
  1. NOVOTHYROX [Suspect]
     Active Substance: LEVOTHYROXINE SODIUM

REACTIONS (14)
  - Feeling abnormal [None]
  - Balance disorder [None]
  - Malaise [None]
  - Blood cholesterol increased [None]
  - Depression [None]
  - Fatigue [None]
  - Dizziness [None]
  - Gastritis [None]
  - Anxiety [None]
  - Tachycardia [None]
  - Asphyxia [None]
  - Blood pressure increased [None]
  - Chest discomfort [None]
  - Psychiatric symptom [None]
